FAERS Safety Report 8053661-2 (Version None)
Quarter: 2012Q1

REPORT INFORMATION
  Report Type: 
  Country: None (occurrence: None)
  Receive Date: 20120118
  Receipt Date: 20120117
  Transmission Date: 20120608
  Serious: No
  Sender: FDA-Public Use
  Company Number: US-PFIZER INC-2011298590

PATIENT
  Sex: Male

DRUGS (2)
  1. OPANA [Suspect]
  2. OXYCODONE HYDROCHLORIDE [Suspect]
     Dosage: UNK

REACTIONS (4)
  - SOMNOLENCE [None]
  - MUSCULOSKELETAL PAIN [None]
  - ARTHRALGIA [None]
  - PAIN [None]
